FAERS Safety Report 23369563 (Version 2)
Quarter: 2024Q2

REPORT INFORMATION
  Report Type: Report from Study
  Country: AR (occurrence: AR)
  Receive Date: 20240105
  Receipt Date: 20240408
  Transmission Date: 20240716
  Serious: Yes (Other)
  Sender: FDA-Public Use
  Company Number: AR-002147023-NVSC2023AR270270

PATIENT
  Age: 56 Year
  Sex: Female

DRUGS (2)
  1. PIQRAY [Suspect]
     Active Substance: ALPELISIB
     Indication: Breast cancer metastatic
     Dosage: 300 MG, QD
     Route: 048
     Dates: start: 20231128
  2. PIQRAY [Suspect]
     Active Substance: ALPELISIB
     Dosage: 1 OF 150MG
     Route: 048
     Dates: end: 202402

REACTIONS (7)
  - Pulmonary oedema [Unknown]
  - Hypersensitivity [Unknown]
  - Urticaria [Unknown]
  - Blood glucose increased [Unknown]
  - Tachycardia [Unknown]
  - Asthenia [Unknown]
  - Muscle disorder [Unknown]

NARRATIVE: CASE EVENT DATE: 20231205
